FAERS Safety Report 4314718-2 (Version None)
Quarter: 2004Q1

REPORT INFORMATION
  Report Type: 
  Country: None (occurrence: None)
  Receive Date: 20040309
  Receipt Date: 20040309
  Transmission Date: 20041129
  Serious: No
  Sender: FDA-Public Use
  Company Number: None

PATIENT
  Age: 81 Year
  Sex: Female
  Weight: 70.91 kg

DRUGS (3)
  1. OSELTAMIVIR PHOSPHATE [Suspect]
     Indication: BRONCHITIS
     Dosage: 75 MG BID PO
     Route: 048
     Dates: start: 20031212, end: 20031214
  2. OSELTAMIVIR PHOSPHATE [Suspect]
     Indication: INFLUENZA
     Dosage: 75 MG BID PO
     Route: 048
     Dates: start: 20031212, end: 20031214
  3. AZITHROMYCIN [Concomitant]

REACTIONS (5)
  - ANXIETY [None]
  - CONDITION AGGRAVATED [None]
  - EXTRAPYRAMIDAL DISORDER [None]
  - PARKINSONISM [None]
  - RESTLESSNESS [None]
